FAERS Safety Report 8958525 (Version 1)
Quarter: 2012Q4

REPORT INFORMATION
  Report Type: Spontaneous
  Country: US (occurrence: None)
  Receive Date: 20121205
  Receipt Date: 20121205
  Transmission Date: 20130627
  Serious: No
  Sender: FDA-Public Use
  Company Number: None

PATIENT
  Age: 70 Year
  Sex: Male
  Weight: 79.38 kg

DRUGS (4)
  1. SIMVASTATIN [Suspect]
     Indication: CHOLESTEROL  HIGH
     Dates: start: 20120501, end: 20120521
  2. SIMVASTATIN [Suspect]
     Indication: BLOOD SUGAR INCREASED
     Dates: start: 20120501, end: 20120521
  3. SIMVASTATIN [Suspect]
     Indication: CHOLESTEROL  HIGH
     Dates: start: 20121101, end: 20121101
  4. SIMVASTATIN [Suspect]
     Indication: BLOOD SUGAR INCREASED
     Dates: start: 20121101, end: 20121101

REACTIONS (5)
  - Balance disorder [None]
  - Hypoaesthesia [None]
  - Paraesthesia [None]
  - Myalgia [None]
  - Mobility decreased [None]
